FAERS Safety Report 6441863-8 (Version None)
Quarter: 2009Q4

REPORT INFORMATION
  Report Type: 
  Country: None (occurrence: None)
  Receive Date: 20091112
  Receipt Date: 20091101
  Transmission Date: 20100525
  Serious: Yes (Hospitalization)
  Sender: FDA-Public Use
  Company Number: 1-20075622

PATIENT
  Sex: Female

DRUGS (8)
  1. LAMOTRIGINE [Suspect]
     Indication: CONVULSION
     Dosage: 100 MG TWICE DAILY ORAL
     Route: 048
     Dates: start: 20090201
  2. BACLOFEN [Suspect]
     Indication: MUSCLE SPASTICITY
     Dosage: 30 MG DAY ORAL
     Route: 048
  3. KEPPRA [Suspect]
     Indication: CONVULSION
     Dosage: ORAL
     Route: 048
     Dates: start: 20090201, end: 20090401
  4. DILANTIN [Suspect]
     Indication: CONVULSION
     Dosage: ORAL
     Route: 048
     Dates: start: 20090201, end: 20090711
  5. FENTANYL [Suspect]
     Indication: BACK PAIN
     Dosage: 25 MCG/HR EVERY 72 HRS, TRANSDERMAL
     Route: 062
     Dates: start: 20090305
  6. LAMOTRIGINE [Suspect]
     Indication: CONVULSION
     Dosage: ORAL
     Route: 048
     Dates: start: 20090401
  7. LAMOTRIGINE [Suspect]
     Indication: CONVULSION
     Dosage: 25 MG TWICE DAILY ORAL
     Route: 048
     Dates: start: 20090301
  8. LAMICTAL [Suspect]
     Indication: CONVULSION
     Dosage: 100 MG TWICE DAILY ORAL
     Route: 048

REACTIONS (15)
  - BLOOD ELECTROLYTES DECREASED [None]
  - CONDITION AGGRAVATED [None]
  - CONFUSIONAL STATE [None]
  - CONVULSION [None]
  - GRAND MAL CONVULSION [None]
  - HEADACHE [None]
  - HYPERHIDROSIS [None]
  - LOSS OF CONSCIOUSNESS [None]
  - MEMORY IMPAIRMENT [None]
  - NECK PAIN [None]
  - PRODUCT SUBSTITUTION ISSUE [None]
  - STATUS EPILEPTICUS [None]
  - THERAPEUTIC AGENT TOXICITY [None]
  - URINARY TRACT INFECTION [None]
  - VENTRICULAR TACHYCARDIA [None]
